FAERS Safety Report 4963136-2 (Version None)
Quarter: 2006Q2

REPORT INFORMATION
  Report Type: 
  Country: None (occurrence: None)
  Receive Date: 20060405
  Receipt Date: 20040312
  Transmission Date: 20061013
  Serious: Yes (Death, Life-Threatening, Hospitalization)
  Sender: FDA-Public Use
  Company Number: DE-ROCHE-361493

PATIENT
  Age: 64 Year
  Sex: Male
  Weight: 110 kg

DRUGS (8)
  1. CAPECITABINE [Suspect]
     Dosage: ON DAYS 1 TO 15 AND DAYS 22 TO 36 FOR A TOTAL OF 28 DOSES. (CUMMULATIVE DOSE: 1500 MG ON 04 MARCH 2+
     Route: 048
     Dates: start: 20031222, end: 20040309
  2. CPT 11 [Suspect]
     Dosage: GIVEN ON DAYS 1 AND 22 OF A 6 WEEK CYCLE. (CUMMULATIVE DOSE:144000 ON 09 MARCH 2004).
     Route: 042
     Dates: start: 20031222, end: 20040304
  3. PLACEBO [Suspect]
     Dosage: ON DAYS ONE AND TWENTY TWO BEFORE IRINOTECAN IS ADMINISTERED. THE PATIENT HAD RECEIVED A CUMULATIVE+
     Route: 048
     Dates: start: 20040122, end: 20040310
  4. INSULIN [Concomitant]
     Dates: start: 20040115, end: 20040315
  5. BLOPRESS [Concomitant]
     Dates: start: 20040115, end: 20040315
  6. METOPROLOL [Concomitant]
     Dates: start: 20040115, end: 20040315
  7. DEXAMETHASONE [Concomitant]
     Dosage: 8 MG GIVEN ON 22 JAN 2004, 12 FEB 2004, 04 MAR 2004, 25 MAR 2004 AND 15 APRIL 2004.
     Dates: start: 20040122
  8. ZOFRAN [Concomitant]
     Dosage: 8 MG GIVEN ON 22 JAN 2004, 12 FEB 2004, 04 MAR 2004, 25 MAR 2004 AND 15 APRIL 2004.
     Dates: start: 20040122

REACTIONS (6)
  - BLOOD GLUCOSE INCREASED [None]
  - CARDIOGENIC SHOCK [None]
  - DIARRHOEA [None]
  - MYOCARDIAL INFARCTION [None]
  - VENTRICULAR FIBRILLATION [None]
  - VOMITING [None]
